FAERS Safety Report 22913316 (Version 8)
Quarter: 2024Q4

REPORT INFORMATION
  Report Type: Report from Study
  Country: CA (occurrence: CA)
  Receive Date: 20230906
  Receipt Date: 20241121
  Transmission Date: 20250115
  Serious: Yes (Other)
  Sender: CHIESI
  Company Number: CA-CHIESI-2023CHF04571

PATIENT
  Age: 19 Year
  Sex: Female
  Weight: 52.8 kg

DRUGS (7)
  1. DEFERIPRONE [Suspect]
     Active Substance: DEFERIPRONE
     Indication: Thalassaemia
     Dosage: 30 MILLILITER, BID
     Route: 048
     Dates: start: 20100528, end: 20241106
  2. DEFERIPRONE [Suspect]
     Active Substance: DEFERIPRONE
     Dosage: 20 MILLILITER, BID
     Route: 048
     Dates: start: 20230824
  3. DEFERIPRONE [Suspect]
     Active Substance: DEFERIPRONE
     Dosage: 20 MILLILITER, BID
     Route: 048
     Dates: start: 20231108
  4. DEFERIPRONE [Suspect]
     Active Substance: DEFERIPRONE
     Dosage: 20 MILLILITER, QD
     Route: 048
  5. DEFERIPRONE [Suspect]
     Active Substance: DEFERIPRONE
     Dosage: 25 MILLILITER, BID
     Route: 048
     Dates: end: 20241106
  6. DEFERIPRONE [Suspect]
     Active Substance: DEFERIPRONE
     Dosage: 25 MILLILITER, BID
     Route: 048
  7. FERRIPROX [Concomitant]
     Active Substance: DEFERIPRONE
     Indication: Thalassaemia
     Dosage: 3000 UNK, BID
     Route: 048
     Dates: start: 20100528, end: 202201

REACTIONS (14)
  - White blood cell count decreased [Unknown]
  - Neutropenia [Unknown]
  - Platelet count decreased [Unknown]
  - Haemoglobin decreased [Unknown]
  - Prescribed overdose [Not Recovered/Not Resolved]
  - Nasopharyngitis [Recovering/Resolving]
  - Skin laceration [Unknown]
  - Chromaturia [Unknown]
  - Pyrexia [Unknown]
  - Influenza [Unknown]
  - Drug ineffective [Unknown]
  - Treatment noncompliance [Unknown]
  - Off label use [Not Recovered/Not Resolved]
  - Off label use [Not Recovered/Not Resolved]

NARRATIVE: CASE EVENT DATE: 20100528
